FAERS Safety Report 8028815-1 (Version None)
Quarter: 2012Q1

REPORT INFORMATION
  Report Type: 
  Country: None (occurrence: None)
  Receive Date: 20120106
  Receipt Date: 20111227
  Transmission Date: 20120608
  Serious: Yes (Death)
  Sender: FDA-Public Use
  Company Number: US-CELGENEUS-163-21880-11122588

PATIENT
  Sex: Male

DRUGS (25)
  1. OXYCONTIN [Concomitant]
     Route: 065
  2. TAMSULOSIN HCL [Concomitant]
     Route: 065
  3. FINASTERIDE [Concomitant]
     Route: 065
  4. FLOMAX [Concomitant]
     Route: 065
  5. LEVOTHROID [Concomitant]
     Route: 065
  6. LIPITOR [Concomitant]
     Route: 065
  7. OMEPRAZOLE [Concomitant]
     Route: 065
  8. HUMALOG [Concomitant]
     Route: 065
  9. PROCRIT [Concomitant]
     Route: 065
  10. VELCADE [Concomitant]
     Route: 065
  11. LYRICA [Concomitant]
     Route: 065
  12. REVLIMID [Suspect]
     Indication: MULTIPLE MYELOMA
     Dosage: 25 MILLIGRAM
     Route: 048
     Dates: start: 20111101
  13. VISTARIL [Concomitant]
     Route: 065
  14. MULTI-VITAMINS [Concomitant]
     Route: 065
  15. LOPID [Concomitant]
     Route: 065
  16. RYTHMOL [Concomitant]
     Route: 065
  17. AVODART [Concomitant]
     Route: 065
  18. DILAUDID [Concomitant]
     Route: 065
  19. MIRALAX [Concomitant]
     Route: 065
  20. OXYCODONE HCL [Concomitant]
     Route: 065
  21. ASPIRIN [Concomitant]
     Dosage: 81
     Route: 065
  22. ATACAND [Concomitant]
     Route: 065
  23. COLACE [Concomitant]
     Route: 065
  24. LANTUS [Concomitant]
     Route: 065
  25. FLAX OIL [Concomitant]
     Route: 065

REACTIONS (1)
  - DEATH [None]
